FAERS Safety Report 10148736 (Version 2)
Quarter: 2014Q2

REPORT INFORMATION
  Report Type: Spontaneous
  Country: DE (occurrence: DE)
  Receive Date: 20140502
  Receipt Date: 20140515
  Transmission Date: 20141212
  Serious: Yes (Other)
  Sender: FDA-Public Use
  Company Number: DE-JNJFOC-20140413779

PATIENT
  Sex: Male

DRUGS (2)
  1. REGAINE MAENNER SCHAUM [Suspect]
     Route: 061
  2. REGAINE MAENNER SCHAUM [Suspect]
     Indication: PRODUCT USED FOR UNKNOWN INDICATION
     Route: 061
     Dates: start: 2013

REACTIONS (1)
  - Arrhythmia [Unknown]
